FAERS Safety Report 16189230 (Version 2)
Quarter: 2020Q1

REPORT INFORMATION
  Report Type: Spontaneous
  Country: RO (occurrence: RO)
  Receive Date: 20190412
  Receipt Date: 20200226
  Transmission Date: 20200409
  Serious: Yes (Hospitalization, Other)
  Sender: FDA-Public Use
  Company Number: RO-GLAXOSMITHKLINE-RO2019065562

PATIENT
  Age: 50 Year
  Sex: Female
  Weight: 50 kg

DRUGS (6)
  1. IMURAN [Concomitant]
     Active Substance: AZATHIOPRINE
     Indication: SYSTEMIC LUPUS ERYTHEMATOSUS
     Dosage: 100 MG (DAILY)
     Route: 048
     Dates: start: 2018, end: 2019
  2. IMURAN [Concomitant]
     Active Substance: AZATHIOPRINE
     Dosage: 25 MG (DAILY)
     Route: 048
  3. VITAMIN D [Concomitant]
     Active Substance: VITAMIN D NOS
     Indication: PROPHYLAXIS
     Dosage: UNK
  4. DAPSONE. [Suspect]
     Active Substance: DAPSONE
     Indication: SKIN LESION
     Dosage: UNK
  5. METHYLPREDNISOLONE. [Concomitant]
     Active Substance: METHYLPREDNISOLONE
     Indication: SKIN LESION
     Dosage: 250 MG (PULSE THERAPY)
     Route: 042
  6. BELIMUMAB [Suspect]
     Active Substance: BELIMUMAB
     Indication: SYSTEMIC LUPUS ERYTHEMATOSUS
     Dosage: 10 MG/KG (3 LOADING DOSES 10 MG/KG (DAYS 0, 14, 28) ANOTHER 4 WEEKS LATER
     Route: 042
     Dates: start: 20190107, end: 20190329

REACTIONS (7)
  - Apoptosis [Recovered/Resolved]
  - Dermatitis bullous [Recovered/Resolved]
  - Nikolsky^s sign [Recovered/Resolved]
  - Epidermal necrosis [Recovered/Resolved]
  - Toxic epidermal necrolysis [Recovered/Resolved]
  - Skin exfoliation [Recovered/Resolved]
  - Rash erythematous [Recovered/Resolved]

NARRATIVE: CASE EVENT DATE: 20190322
